FAERS Safety Report 8036429-2 (Version None)
Quarter: 2012Q1

REPORT INFORMATION
  Report Type: 
  Country: None (occurrence: None)
  Receive Date: 20120106
  Receipt Date: 20111227
  Transmission Date: 20120608
  Serious: Yes (Other)
  Sender: FDA-Public Use
  Company Number: KAD201112-000167

PATIENT
  Age: 60 Year
  Sex: Male

DRUGS (2)
  1. RIBAVIRIN [Suspect]
     Indication: HEPATITIS C
     Dosage: 1200 MG DAILY FOR 16 WEEKS, ORAL
     Route: 048
  2. INTERFERON ALPHA 2B (INTERFERON ALPHA 2B) [Suspect]
     Indication: HEPATITIS C
     Dosage: 3 MILLION UNITES, THREE TIMES A WEEK, SUBCUTANEOUS
     Route: 058

REACTIONS (3)
  - AUTOIMMUNE THYROIDITIS [None]
  - COOMBS TEST POSITIVE [None]
  - ANAEMIA HAEMOLYTIC AUTOIMMUNE [None]
